FAERS Safety Report 7453044-X (Version None)
Quarter: 2011Q2

REPORT INFORMATION
  Report Type: 
  Country: None (occurrence: None)
  Receive Date: 20110502
  Receipt Date: 20110104
  Transmission Date: 20111010
  Serious: No
  Sender: FDA-Public Use
  Company Number: US-ASTRAZENECA-2010SE58870

PATIENT
  Age: 64 Year
  Sex: Female
  Weight: 88 kg

DRUGS (8)
  1. NEXIUM [Suspect]
     Route: 048
     Dates: start: 20101209
  2. PREDNISONE [Concomitant]
     Indication: BRONCHITIS
  3. ARIMIDEX [Suspect]
     Indication: BREAST CANCER
     Route: 048
  4. DIOVAN [Concomitant]
     Indication: HYPERTENSION
  5. ERYTHROMYCIN [Concomitant]
     Indication: BRONCHITIS
  6. NEXIUM [Suspect]
     Indication: GASTROOESOPHAGEAL REFLUX DISEASE
     Route: 048
     Dates: end: 20101208
  7. SYMBICORT [Concomitant]
     Indication: BRONCHITIS
  8. NORVASC [Concomitant]
     Indication: HYPERTENSION

REACTIONS (4)
  - BRONCHITIS [None]
  - DRUG INEFFECTIVE [None]
  - FLATULENCE [None]
  - GASTROOESOPHAGEAL REFLUX DISEASE [None]
